FAERS Safety Report 6739024-8 (Version None)
Quarter: 2010Q2

REPORT INFORMATION
  Report Type: 
  Country: None (occurrence: None)
  Receive Date: 20100524
  Receipt Date: 20100524
  Transmission Date: 20101027
  Serious: Yes (Hospitalization, Other)
  Sender: FDA-Public Use
  Company Number: None

PATIENT
  Age: 21 Year
  Sex: Female
  Weight: 81.6475 kg

DRUGS (2)
  1. OCELLA -GENERIC FOR YASMIN 28- 3MG BARR LABORATORIES INC. [Suspect]
     Indication: AMENORRHOEA
     Dosage: 3 MG/0.03 MG ONCE DAILY PO JUST OVER TWO YEARS
     Route: 048
     Dates: start: 20070712, end: 20090926
  2. OCELLA -GENERIC FOR YASMIN 28- 3MG BARR LABORATORIES INC. [Suspect]
     Indication: MENSTRUAL CYCLE MANAGEMENT
     Dosage: 3 MG/0.03 MG ONCE DAILY PO JUST OVER TWO YEARS
     Route: 048
     Dates: start: 20070712, end: 20090926

REACTIONS (7)
  - ABDOMINAL DISCOMFORT [None]
  - BACK PAIN [None]
  - CHOLELITHIASIS [None]
  - DIARRHOEA [None]
  - LOSS OF CONSCIOUSNESS [None]
  - UNEVALUABLE EVENT [None]
  - VOMITING [None]
